FAERS Safety Report 9981424 (Version 1)
Quarter: 2014Q1

REPORT INFORMATION
  Report Type: Spontaneous
  Country: US (occurrence: US)
  Receive Date: 20140307
  Receipt Date: 20140307
  Transmission Date: 20141002
  Serious: Yes (Hospitalization)
  Sender: FDA-Public Use
  Company Number: US-BRISTOL-MYERS SQUIBB COMPANY-20344776

PATIENT
  Sex: 0

DRUGS (7)
  1. KOMBOGLYZE [Suspect]
  2. ASPIRIN [Concomitant]
  3. PRAVASTATIN SODIUM [Concomitant]
  4. LISINOPRIL [Concomitant]
  5. CITALOPRAM [Concomitant]
  6. BROVANA [Concomitant]
  7. BUDESONIDE [Concomitant]

REACTIONS (1)
  - Immune thrombocytopenic purpura [Unknown]
